FAERS Safety Report 9115426 (Version 4)
Quarter: 2014Q2

REPORT INFORMATION
  Report Type: Spontaneous
  Country: DE (occurrence: DE)
  Receive Date: 20130225
  Receipt Date: 20140606
  Transmission Date: 20141212
  Serious: Yes (Death, Hospitalization)
  Sender: FDA-Public Use
  Company Number: DE-JNJFOC-20130212591

PATIENT
  Age: 61 Year
  Sex: Male

DRUGS (3)
  1. REMICADE [Suspect]
     Indication: COLITIS ULCERATIVE
     Route: 042
  2. SALOFALK [Concomitant]
     Route: 065
     Dates: start: 2011, end: 201301
  3. BLOPRESS [Concomitant]
     Route: 065
     Dates: end: 201301

REACTIONS (4)
  - Pulmonary embolism [Fatal]
  - Interstitial lung disease [Fatal]
  - Aortic dilatation [Unknown]
  - Pneumonia klebsiella [Not Recovered/Not Resolved]
